FAERS Safety Report 7821659-2 (Version None)
Quarter: 2011Q4

REPORT INFORMATION
  Report Type: 
  Country: None (occurrence: None)
  Receive Date: 20111018
  Receipt Date: 20111011
  Transmission Date: 20120403
  Serious: Yes (Other)
  Sender: FDA-Public Use
  Company Number: US-AMGEN-USASP2011036109

PATIENT
  Age: 27 Year
  Sex: Male
  Weight: 56.236 kg

DRUGS (1)
  1. PROCRIT [Suspect]
     Indication: NEPHROGENIC ANAEMIA
     Dosage: 20000 IU, QWK

REACTIONS (2)
  - HYPERPARATHYROIDISM [None]
  - THERAPEUTIC RESPONSE DECREASED [None]
